FAERS Safety Report 23264405 (Version 1)
Quarter: 2023Q4

REPORT INFORMATION
  Report Type: Spontaneous
  Country: KR (occurrence: KR)
  Receive Date: 20231205
  Receipt Date: 20231205
  Transmission Date: 20240109
  Serious: Yes (Other)
  Sender: FDA-Public Use
  Company Number: KR-009507513-2312KOR000627

PATIENT
  Age: 80 Year
  Sex: Female

DRUGS (4)
  1. JANUMET [Suspect]
     Active Substance: METFORMIN HYDROCHLORIDE\SITAGLIPTIN PHOSPHATE
     Dosage: 1 DOSAGE FORM, BID
     Dates: start: 20221101, end: 20221201
  2. PIOGLITAZONE HYDROCHLORIDE [Suspect]
     Active Substance: PIOGLITAZONE HYDROCHLORIDE
     Dosage: 1 DOSAGE FORM, QD
     Dates: start: 20221101, end: 20221201
  3. THIOCTIC ACID [Suspect]
     Active Substance: THIOCTIC ACID
     Dosage: 1 DOSAGE FORM, QD
     Dates: start: 20221101, end: 20221201
  4. AMLODIPINE\TELMISARTAN [Suspect]
     Active Substance: AMLODIPINE\TELMISARTAN
     Dates: start: 20221101, end: 20221201

REACTIONS (2)
  - Tongue discomfort [Recovering/Resolving]
  - Tongue paralysis [Recovering/Resolving]

NARRATIVE: CASE EVENT DATE: 20221101
